FAERS Safety Report 9413066 (Version 4)
Quarter: 2014Q2

REPORT INFORMATION
  Report Type: Report from Study
  Country: DE (occurrence: DE)
  Receive Date: 20130722
  Receipt Date: 20140606
  Transmission Date: 20141212
  Serious: Yes (Life-Threatening, Hospitalization)
  Sender: FDA-Public Use
  Company Number: DE-GLAXOSMITHKLINE-B0909375A

PATIENT
  Age: 66 Year
  Sex: Male
  Weight: 76 kg

DRUGS (11)
  1. VALTREX [Suspect]
     Indication: PROPHYLAXIS
     Dosage: 500MG PER DAY
     Route: 048
     Dates: start: 20130409, end: 20130607
  2. GEMTUZUMAB OZOGAMICIN [Suspect]
     Indication: ACUTE MYELOID LEUKAEMIA
     Dosage: 5.97MG PER DAY
     Dates: start: 20130409, end: 20130409
  3. IDARUBICIN [Concomitant]
     Dates: start: 20130409, end: 20130411
  4. CYTARABINE [Concomitant]
     Dates: start: 20130409, end: 20130413
  5. ETOPOSIDE [Concomitant]
     Dates: start: 20130409, end: 20130411
  6. TRETINOIN [Concomitant]
     Dates: start: 20130414, end: 20130429
  7. PEGFILGRASTIM [Concomitant]
     Dates: start: 20120418, end: 20130418
  8. EUTHYROX [Concomitant]
     Dates: start: 2003
  9. PANTOPRAZOL [Concomitant]
     Dates: start: 20130314
  10. CAPTOHEXAL [Concomitant]
     Dates: start: 20130421
  11. FLUCONAZOLE [Concomitant]
     Dates: start: 20130513, end: 20130605

REACTIONS (1)
  - Pancytopenia [Not Recovered/Not Resolved]
